FAERS Safety Report 12340348 (Version 1)
Quarter: 2016Q2

REPORT INFORMATION
  Report Type: Spontaneous
  Country: US (occurrence: None)
  Receive Date: 20160505
  Receipt Date: 20160505
  Transmission Date: 20160815
  Serious: Yes (Other)
  Sender: FDA-Public Use
  Company Number: None

PATIENT
  Age: 3 Year
  Sex: Male
  Weight: 16.33 kg

DRUGS (3)
  1. PROBIOTIC [Concomitant]
     Active Substance: PROBIOTICS NOS
  2. MULTIVITAMIN [Concomitant]
     Active Substance: VITAMINS
  3. CEFDINIR 250 MG/5ML, 250 MG [Suspect]
     Active Substance: CEFDINIR
     Indication: PHARYNGITIS STREPTOCOCCAL
     Route: 048
     Dates: start: 20160221, end: 20160223

REACTIONS (4)
  - Anger [None]
  - Screaming [None]
  - Aggression [None]
  - Abnormal behaviour [None]

NARRATIVE: CASE EVENT DATE: 20160221
